FAERS Safety Report 5200225-1 (Version None)
Quarter: 2007Q2

REPORT INFORMATION
  Report Type: 
  Country: None (occurrence: None)
  Receive Date: 20070105
  Receipt Date: 20061226
  Transmission Date: 20071010
  Serious: Yes (Life-Threatening)
  Sender: FDA-Public Use
  Company Number: FR-PFIZER INC-2006155609

PATIENT
  Age: 34 Year
  Sex: Female
  Weight: 52 kg

DRUGS (5)
  1. CLINDAMYCIN HCL [Suspect]
     Indication: TOXOPLASMOSIS
     Route: 048
     Dates: start: 20061018, end: 20061023
  2. KALETRA [Suspect]
     Route: 048
  3. ABACAVIR SULFATE LAMIVUDINE AND ZIDOVUDINE [Suspect]
     Dosage: TEXT:1 DOSE FORM; 1 DOSE FORM-FREQ:FREQUENCY: DAILY
     Route: 048
     Dates: start: 20061016, end: 20061023
  4. SULFADIAZINE [Concomitant]
  5. PYRIMETHAMINE TAB [Concomitant]

REACTIONS (7)
  - GENERAL PHYSICAL HEALTH DETERIORATION [None]
  - HYPERSENSITIVITY [None]
  - INTERSTITIAL LUNG DISEASE [None]
  - MULTI-ORGAN FAILURE [None]
  - PYREXIA [None]
  - RASH MACULO-PAPULAR [None]
  - RESPIRATORY DISTRESS [None]
